FAERS Safety Report 4811843-4 (Version None)
Quarter: 2005Q4

REPORT INFORMATION
  Report Type: 
  Country: None (occurrence: None)
  Receive Date: 20051028
  Receipt Date: 20041007
  Transmission Date: 20060501
  Serious: No
  Sender: FDA-Public Use
  Company Number: US-GLAXOSMITHKLINE-A0528988A

PATIENT
  Age: 10 Year
  Sex: Male

DRUGS (5)
  1. ADVAIR DISKUS 100/50 [Suspect]
     Indication: ASTHMA
  2. ACCOLATE [Concomitant]
  3. BINEX [Concomitant]
  4. ZOLOFT [Concomitant]
  5. RISPERIDONE [Concomitant]

REACTIONS (3)
  - ASTHMA [None]
  - COUGH [None]
  - PHARMACEUTICAL PRODUCT COMPLAINT [None]
